FAERS Safety Report 5089703-6 (Version None)
Quarter: 2006Q3

REPORT INFORMATION
  Report Type: 
  Country: None (occurrence: None)
  Receive Date: 20060821
  Receipt Date: 20060203
  Transmission Date: 20061208
  Serious: Yes (Other)
  Sender: FDA-Public Use
  Company Number: 200511941BBE

PATIENT
  Age: 43 Year
  Sex: Female

DRUGS (1)
  1. GAMUNEX [Suspect]
     Indication: IMMUNODEFICIENCY
     Dosage: 65 G, TOTAL DAILY, INTRAVENOUS
     Route: 042
     Dates: start: 20051107

REACTIONS (1)
  - THROMBOSIS [None]
